FAERS Safety Report 7689291-1 (Version None)
Quarter: 2011Q3

REPORT INFORMATION
  Report Type: 
  Country: None (occurrence: None)
  Receive Date: 20110817
  Receipt Date: 20110811
  Transmission Date: 20111222
  Serious: Yes (Other)
  Sender: FDA-Public Use
  Company Number: CA-PFIZER INC-2011185854

PATIENT
  Age: 98 Year
  Sex: Female

DRUGS (4)
  1. RANIBIZUMAB [Concomitant]
     Indication: MACULAR DEGENERATION
     Dosage: 1 INJECTION INTO THE EYE, EVERY 3 MONTHS
     Route: 047
  2. XALATAN [Suspect]
     Indication: GLAUCOMA
     Dosage: 1 GTT IN BOTH EYES, 1X/DAY
     Route: 047
  3. BISOPROLOL [Concomitant]
     Indication: BLOOD PRESSURE
     Dosage: 5 MG - 1/2 A TAB, 1X/DAY
  4. LEVOTHYROXINE [Concomitant]
     Indication: THYROID DISORDER
     Dosage: 0.088 MG, 1X/DAY

REACTIONS (1)
  - EYE DISORDER [None]
